FAERS Safety Report 9409621 (Version 2)
Quarter: 2013Q3

REPORT INFORMATION
  Report Type: Report from Study
  Country: BR (occurrence: BR)
  Receive Date: 20130719
  Receipt Date: 20130923
  Transmission Date: 20140515
  Serious: Yes (Hospitalization, Other)
  Sender: FDA-Public Use
  Company Number: PHHY2013BR076313

PATIENT
  Sex: Female
  Weight: 64 kg

DRUGS (3)
  1. GILENYA [Suspect]
     Indication: MULTIPLE SCLEROSIS
     Dosage: 0.5 MG, UNK
     Route: 048
     Dates: start: 2013
  2. RIVOTRIL [Concomitant]
     Indication: ANXIETY
     Dosage: 1 DF, UNK
     Route: 048
     Dates: start: 201307
  3. TEGRETOL [Concomitant]
     Indication: CONVULSION
     Dosage: 4 DF, QD

REACTIONS (2)
  - Convulsion [Recovered/Resolved]
  - Tremor [Unknown]
